FAERS Safety Report 4553043-1 (Version None)
Quarter: 2005Q1

REPORT INFORMATION
  Report Type: 
  Country: None (occurrence: None)
  Receive Date: 20050113
  Receipt Date: 20041228
  Transmission Date: 20050727
  Serious: Yes (Death, Hospitalization)
  Sender: FDA-Public Use
  Company Number: 2004118849

PATIENT
  Age: 78 Year
  Sex: Female

DRUGS (8)
  1. CELEBREX [Suspect]
     Indication: OSTEOARTHRITIS
     Dosage: 200 MG
     Dates: start: 20040101, end: 20040101
  2. PREDNISONE [Concomitant]
  3. ATORVASTATIN CALCIUM [Concomitant]
  4. MOXONIDINE (MOXONIDINE) [Concomitant]
  5. DILTIAZEM HYDROCHLORIDE [Concomitant]
  6. HYDROCHLOROTHIAZIDE [Concomitant]
  7. FLUINDIONE (FLUINDIONE) [Concomitant]
  8. RISEDRONATE SODIUM (RISEDRONATE SODIUM) [Concomitant]

REACTIONS (4)
  - CEREBROVASCULAR ACCIDENT [None]
  - COMA [None]
  - HEADACHE [None]
  - HEMIPLEGIA [None]
